FAERS Safety Report 5706662-0 (Version None)
Quarter: 2008Q2

REPORT INFORMATION
  Report Type: 
  Country: None (occurrence: None)
  Receive Date: 20080414
  Receipt Date: 20080414
  Transmission Date: 20081010
  Serious: Yes (Life-Threatening)
  Sender: FDA-Public Use
  Company Number: None

PATIENT
  Age: 84 Year
  Sex: Female
  Weight: 81 kg

DRUGS (2)
  1. CLOPIDOGREL [Suspect]
     Dosage: 75MG DAILY
  2. ASPIRIN [Suspect]
     Dosage: 325MG DAILY

REACTIONS (2)
  - ANAEMIA [None]
  - GASTROINTESTINAL HAEMORRHAGE [None]
